FAERS Safety Report 21696429 (Version 1)
Quarter: 2022Q4

REPORT INFORMATION
  Report Type: Spontaneous
  Country: US (occurrence: US)
  Receive Date: 20221207
  Receipt Date: 20221207
  Transmission Date: 20230112
  Serious: No
  Sender: FDA-Public Use
  Company Number: US-AMGEN-USASP2022207943

PATIENT

DRUGS (1)
  1. PROLIA [Suspect]
     Active Substance: DENOSUMAB
     Indication: Product used for unknown indication
     Dosage: UNK
     Route: 065

REACTIONS (5)
  - Blood phosphorus decreased [Unknown]
  - Vitamin D increased [Unknown]
  - Blood parathyroid hormone increased [Unknown]
  - Blood calcium decreased [Unknown]
  - Hypocalcaemia [Unknown]
